FAERS Safety Report 5760330-8 (Version None)
Quarter: 2008Q2

REPORT INFORMATION
  Report Type: 
  Country: None (occurrence: None)
  Receive Date: 20080605
  Receipt Date: 20080526
  Transmission Date: 20081010
  Serious: Yes (Other)
  Sender: FDA-Public Use
  Company Number: FR-PFIZER INC-2008026088

PATIENT
  Sex: Female
  Weight: 56 kg

DRUGS (2)
  1. CHANTIX [Suspect]
     Indication: SMOKING CESSATION THERAPY
     Dosage: DAILY DOSE:1MG
     Route: 048
     Dates: start: 20080215, end: 20080317
  2. HOMEOPATHIC PREPARATION [Concomitant]

REACTIONS (6)
  - DISTURBANCE IN ATTENTION [None]
  - FATIGUE [None]
  - MORBID THOUGHTS [None]
  - NAUSEA [None]
  - SLEEP DISORDER [None]
  - VERTIGO [None]
